FAERS Safety Report 15174178 (Version 1)
Quarter: 2018Q3

REPORT INFORMATION
  Report Type: Spontaneous
  Country: FR (occurrence: FR)
  Receive Date: 20180720
  Receipt Date: 20180720
  Transmission Date: 20181010
  Serious: Yes (Hospitalization)
  Sender: FDA-Public Use
  Company Number: FR-ALLERGAN-1836119US

PATIENT
  Age: 83 Year
  Sex: Male
  Weight: 63.2 kg

DRUGS (4)
  1. QUITAXON [Concomitant]
     Active Substance: DOXEPIN HYDROCHLORIDE
     Route: 048
  2. ATORVASTATINE [Concomitant]
     Active Substance: ATORVASTATIN
  3. NEBIVOLOL HCL ? BP [Suspect]
     Active Substance: NEBIVOLOL
     Indication: HYPERTENSION
     Dosage: 5 MG, QD
     Route: 048
     Dates: end: 20180605
  4. VALIUM [Concomitant]
     Active Substance: DIAZEPAM

REACTIONS (3)
  - Bradycardia [Recovered/Resolved]
  - Loss of consciousness [Recovered/Resolved]
  - Malaise [Recovered/Resolved]

NARRATIVE: CASE EVENT DATE: 20180605
